FAERS Safety Report 10162194 (Version 1)
Quarter: 2014Q2

REPORT INFORMATION
  Report Type: Spontaneous
  Country: US (occurrence: None)
  Receive Date: 20140507
  Receipt Date: 20140507
  Transmission Date: 20141212
  Serious: Yes (Hospitalization, Other)
  Sender: FDA-Public Use
  Company Number: 2014-00061

PATIENT
  Age: 64 Year
  Sex: Female
  Weight: 63.5 kg

DRUGS (11)
  1. ZICAM COLD REMEDY RAPIDMELTS [Suspect]
     Indication: NASOPHARYNGITIS
     Dosage: 1 TABLET EVERY 6 HOURS
     Route: 048
     Dates: start: 20140404, end: 20140407
  2. ZICAM COLD REMEDY RAPIDMELTS [Suspect]
     Indication: INFLUENZA
     Dosage: 1 TABLET EVERY 6 HOURS
     Route: 048
     Dates: start: 20140404, end: 20140407
  3. LISINOPRIL [Concomitant]
  4. RANITIDINE [Concomitant]
  5. HYDROCHLOROTHIAZIDE [Concomitant]
  6. ISOSORBIDE [Concomitant]
  7. PLAVIX [Concomitant]
  8. ZOCOR [Concomitant]
  9. BABY ASPIRIN [Concomitant]
  10. CALCIUM SUPPLEMENT [Concomitant]
  11. VITAMIN D3 SUPPLEMENT [Concomitant]

REACTIONS (10)
  - Dizziness [None]
  - Nausea [None]
  - Abdominal distension [None]
  - Vomiting [None]
  - Dyspnoea [None]
  - Pancreatitis acute [None]
  - Pneumonia [None]
  - Urinary tract infection [None]
  - Gastrointestinal infection [None]
  - Oral pain [None]
